FAERS Safety Report 11004673 (Version 2)
Quarter: 2016Q1

REPORT INFORMATION
  Report Type: Report from Study
  Country: DE (occurrence: FR)
  Receive Date: 20150409
  Receipt Date: 20160325
  Transmission Date: 20160525
  Serious: Yes (Death)
  Sender: FDA-Public Use
  Company Number: DE-ACTELION-A-NJ2015-116086

PATIENT
  Sex: Male
  Weight: 75 kg

DRUGS (3)
  1. VENTAVIS [Suspect]
     Active Substance: ILOPROST
     Indication: PULMONARY ARTERIAL HYPERTENSION
     Dosage: 5 MCG, 6X/DAY
     Route: 055
     Dates: start: 20140221, end: 20150130
  2. TRAVATAN [Concomitant]
     Active Substance: TRAVOPROST
     Dosage: UNK
     Dates: end: 20150130
  3. TRACLEER [Concomitant]
     Active Substance: BOSENTAN
     Indication: PULMONARY ARTERIAL HYPERTENSION
     Dosage: UNK
     Dates: start: 20130312, end: 20150130

REACTIONS (1)
  - Death [Fatal]

NARRATIVE: CASE EVENT DATE: 20150130
